FAERS Safety Report 22717077 (Version 4)
Quarter: 2024Q1

REPORT INFORMATION
  Report Type: Spontaneous
  Country: US (occurrence: US)
  Receive Date: 20230718
  Receipt Date: 20240307
  Transmission Date: 20240409
  Serious: No
  Sender: FDA-Public Use
  Company Number: US-PFIZER INC-PV202300122965

PATIENT
  Age: 85 Year
  Sex: Female

DRUGS (2)
  1. IBRANCE [Suspect]
     Active Substance: PALBOCICLIB
     Dosage: EVERY MORNING FOR 21 DAYS ON AND 14 DAYS OFF
  2. LETROZOLE [Concomitant]
     Active Substance: LETROZOLE
     Dosage: DAILY FOR 35 DAYS, WITHOUT DAYS OFF

REACTIONS (2)
  - Dysphagia [Unknown]
  - Off label use [Unknown]
